FAERS Safety Report 16167358 (Version 4)
Quarter: 2019Q2

REPORT INFORMATION
  Report Type: Report from Study
  Country: US (occurrence: US)
  Receive Date: 20190408
  Receipt Date: 20190527
  Transmission Date: 20190711
  Serious: Yes (Hospitalization)
  Sender: FDA-Public Use
  Company Number: US-ROCHE-2294259

PATIENT
  Age: 69 Year
  Sex: Male
  Weight: 77 kg

DRUGS (17)
  1. PEMETREXED. [Suspect]
     Active Substance: PEMETREXED
     Indication: NON-SMALL CELL LUNG CANCER
     Dosage: MOST RECENT DOSE OF PEMETREXED (950 MG ONCE PER 3 WEEK): 24/MAY/2018
     Route: 042
     Dates: start: 20180323
  2. OMEGA-3 FATTY ACIDS [Concomitant]
     Active Substance: OMEGA-3 FATTY ACIDS
     Dosage: HEALTH MAINTENANCE
     Route: 065
     Dates: start: 2017
  3. INCRUSE ELLIPTA [Concomitant]
     Active Substance: UMECLIDINIUM BROMIDE
     Indication: CHRONIC OBSTRUCTIVE PULMONARY DISEASE
     Route: 065
     Dates: start: 20190330
  4. FLOMAX [Concomitant]
     Active Substance: TAMSULOSIN HYDROCHLORIDE
     Indication: BENIGN PROSTATIC HYPERPLASIA
     Route: 065
     Dates: start: 2015
  5. FENTANYL. [Concomitant]
     Active Substance: FENTANYL
     Dosage: SEDATION FOR CARDIAC CATHETERIZATION
     Route: 065
     Dates: start: 20190327, end: 20190327
  6. BIVALIRUDIN. [Concomitant]
     Active Substance: BIVALIRUDIN
     Dosage: ANTICOAGULANT DURING CARDIAC CATHETERIZATION
     Route: 065
     Dates: start: 20190327, end: 20190327
  7. IBUPROFEN. [Concomitant]
     Active Substance: IBUPROFEN
     Indication: INCISION SITE PAIN
     Route: 065
     Dates: start: 20180223
  8. CISPLATIN. [Suspect]
     Active Substance: CISPLATIN
     Indication: NON-SMALL CELL LUNG CANCER
     Dosage: MOST RECENT DOSE OF CISPLATIN (143 MG ONCE PER 3 WEEKS): 24/MAY/2018
     Route: 042
     Dates: start: 20180323
  9. SYNTHROID [Concomitant]
     Active Substance: LEVOTHYROXINE SODIUM
     Indication: HYPOTHYROIDISM
     Route: 065
     Dates: start: 20181107
  10. MIDAZOLAM [Concomitant]
     Active Substance: MIDAZOLAM HYDROCHLORIDE
     Dosage: SEDATION FOR CARDIAC CATHETERIZATION
     Route: 065
     Dates: start: 20190327, end: 20190327
  11. ATEZOLIZUMAB. [Suspect]
     Active Substance: ATEZOLIZUMAB
     Indication: NON-SMALL CELL LUNG CANCER
     Dosage: MOST RECENT DOSE OF ATEZOLIZUMAB (1200 MG ONCE PER 3 WEEKS): 25/FEB/2019
     Route: 042
     Dates: start: 20180626
  12. NEOSYNEPHRINE [Concomitant]
     Active Substance: PHENYLEPHRINE HYDROCHLORIDE
     Dosage: CARDIAC CATHETERIZATION
     Route: 065
     Dates: start: 20190327, end: 20190327
  13. PREDNISONE. [Concomitant]
     Active Substance: PREDNISONE
     Indication: ARTHRITIS
     Route: 048
     Dates: start: 20181211, end: 20190225
  14. PREDNISONE. [Concomitant]
     Active Substance: PREDNISONE
     Indication: ARTHRALGIA
     Route: 048
     Dates: start: 20190313, end: 20190411
  15. PANTOPRAZOLE [Concomitant]
     Active Substance: PANTOPRAZOLE
     Indication: DYSPEPSIA
     Route: 065
     Dates: start: 20181213
  16. MIDODRINE [Concomitant]
     Active Substance: MIDODRINE
     Indication: HYPOTENSION
     Route: 065
     Dates: start: 20190330
  17. METFORMIN [Concomitant]
     Active Substance: METFORMIN HYDROCHLORIDE
     Indication: HYPERGLYCAEMIA
     Route: 065

REACTIONS (1)
  - Myocardial infarction [Recovered/Resolved]

NARRATIVE: CASE EVENT DATE: 20190327
